FAERS Safety Report 18631376 (Version 26)
Quarter: 2024Q4

REPORT INFORMATION
  Report Type: Spontaneous
  Country: IN (occurrence: IN)
  Receive Date: 20201218
  Receipt Date: 20241008
  Transmission Date: 20250114
  Serious: Yes (Hospitalization, Other)
  Sender: PFIZER
  Company Number: IN-PFIZER INC-2020494801

PATIENT
  Age: 37 Year
  Sex: Female
  Weight: 60 kg

DRUGS (9)
  1. PALBOCICLIB [Suspect]
     Active Substance: PALBOCICLIB
     Indication: Breast cancer metastatic
     Dosage: UNK
     Route: 048
     Dates: start: 20181128
  2. PALBOCICLIB [Suspect]
     Active Substance: PALBOCICLIB
     Dosage: ONCE DAILY 21 DAYS, GAP OF 7 DAYS
     Route: 048
     Dates: start: 20201117
  3. LETROZOLE [Suspect]
     Active Substance: LETROZOLE
     Indication: Breast cancer metastatic
     Dosage: 2.5 MG, 1X/DAY
     Dates: start: 20181128
  4. ZOLEDRONIC ACID [Concomitant]
     Active Substance: ZOLEDRONIC ACID
     Dosage: UNK (100 MG NS 1/2 (D3))
  5. ZOLEDRONIC ACID [Concomitant]
     Active Substance: ZOLEDRONIC ACID
     Dosage: UNK (4 MG IN 100 ML NS X1/2 HR)
     Route: 042
  6. CALCIUM CARBONATE\CHOLECALCIFEROL [Concomitant]
     Active Substance: CALCIUM CARBONATE\CHOLECALCIFEROL
     Dosage: 1 DF, DAILY (500 MG)
  7. OSTEOFOS [Concomitant]
     Dosage: 70 MG, WEEKLY
  8. DECMAX [Concomitant]
     Dosage: UNK
  9. ONDEM [Concomitant]
     Dosage: UNK

REACTIONS (12)
  - Pain [Unknown]
  - Blood calcium decreased [Unknown]
  - White blood cell count decreased [Not Recovered/Not Resolved]
  - Musculoskeletal stiffness [Unknown]
  - Muscle spasms [Unknown]
  - Neutrophil percentage decreased [Recovered/Resolved]
  - Positron emission tomogram abnormal [Unknown]
  - Blood calcium increased [Unknown]
  - Alopecia [Unknown]
  - Neutrophil count decreased [Unknown]
  - Haemoglobin decreased [Unknown]
  - Neoplasm progression [Unknown]

NARRATIVE: CASE EVENT DATE: 20200101
